FAERS Safety Report 4579732-0 (Version None)
Quarter: 2005Q1

REPORT INFORMATION
  Report Type: 
  Country: None (occurrence: None)
  Receive Date: 20050210
  Receipt Date: 20050202
  Transmission Date: 20050727
  Serious: Yes (Hospitalization)
  Sender: FDA-Public Use
  Company Number: 200510478BCC

PATIENT
  Age: 72 Year
  Sex: Female
  Weight: 68.0396 kg

DRUGS (4)
  1. ALKA SELTZER PLUS COLD EFFERVESCENT [Suspect]
     Indication: HYPERSENSITIVITY
     Dosage: 250/5/2 MG, PRN, ORAL
     Route: 048
  2. SYNTHROID [Concomitant]
  3. ACTONEL [Concomitant]
  4. PEPCID [Concomitant]

REACTIONS (1)
  - FEELING ABNORMAL [None]
